FAERS Safety Report 9511016 (Version 1)
Quarter: 2013Q1

REPORT INFORMATION
  Report Type: Spontaneous
  Country: US (occurrence: None)
  Receive Date: 20130305
  Receipt Date: 20130305
  Transmission Date: 20140127
  Serious: Yes (Other)
  Sender: FDA-Public Use
  Company Number: 163-21880-11072483

PATIENT
  Age: 67 Year
  Sex: Female
  Weight: 74.39 kg

DRUGS (9)
  1. REVLIMID [Suspect]
     Indication: PLASMA CELL MYELOMA
     Dosage: 10 MG, 1 IN 1 D, PO
     Route: 048
     Dates: start: 20110124
  2. ACYCLOVIR (ACICLOVIR) (UNKNOWN) [Concomitant]
  3. ASPIRIN (ACETYLSALICYLIC ACID) (UNKNOWN) (ACETYLSALICYLIC ACID) [Concomitant]
  4. GABAPENTIN (GABAPENTIN) (UNKNOWN) (GABAPENTIN) [Concomitant]
  5. LIPITOR (ATORVASTATIN) (UNKNOWN) [Concomitant]
  6. PRILOSEC (OMEPRAZOLE) (UNKNOWN) [Concomitant]
  7. THYROID (THYROID) (UNKNOWN) [Concomitant]
  8. TYLENOL (PARACETAMOL) (UNKNOWN) [Concomitant]
  9. VITAMIN D (ERGOCALCIFEROL) (UNKNOWN) [Concomitant]

REACTIONS (2)
  - White blood cell count decreased [None]
  - Neutrophil count decreased [None]
